FAERS Safety Report 11930898 (Version 1)
Quarter: 2016Q1

REPORT INFORMATION
  Report Type: Spontaneous
  Country: US (occurrence: US)
  Receive Date: 20160120
  Receipt Date: 20160120
  Transmission Date: 20160526
  Serious: No
  Sender: FDA-Public Use
  Company Number: US-INCYTE CORPORATION-2015IN004008

PATIENT
  Age: 64 Year
  Sex: Female

DRUGS (5)
  1. BINOSTO [Concomitant]
     Active Substance: ALENDRONATE SODIUM
  2. CETRIZINE [Concomitant]
     Active Substance: CETIRIZINE HYDROCHLORIDE
  3. LEVOTHYROXINE. [Concomitant]
     Active Substance: LEVOTHYROXINE
  4. JAKAFI [Suspect]
     Active Substance: RUXOLITINIB
     Indication: POLYCYTHAEMIA VERA
     Dosage: 15 MG, BID
     Route: 048
     Dates: start: 2015
  5. CALCIUM WITH D3 [Concomitant]

REACTIONS (5)
  - Headache [Unknown]
  - Alopecia [Unknown]
  - Food poisoning [Unknown]
  - Vomiting [Unknown]
  - Confusional state [Unknown]

NARRATIVE: CASE EVENT DATE: 20150808
